FAERS Safety Report 9638316 (Version 1)
Quarter: 2013Q4

REPORT INFORMATION
  Report Type: Spontaneous
  Country: FR (occurrence: FR)
  Receive Date: 20131022
  Receipt Date: 20131022
  Transmission Date: 20140711
  Serious: Yes (Other)
  Sender: FDA-Public Use
  Company Number: FR-ROCHE-1290712

PATIENT
  Age: 17 Year
  Sex: Female

DRUGS (17)
  1. MABTHERA [Suspect]
     Indication: ENCEPHALITIS AUTOIMMUNE
     Route: 042
     Dates: start: 20130724
  2. PRODILANTIN [Suspect]
     Indication: PRODUCT USED FOR UNKNOWN INDICATION
     Route: 040
     Dates: start: 20130724, end: 20130728
  3. PRODILANTIN [Suspect]
     Route: 065
     Dates: start: 20130626, end: 20130628
  4. PROPOFOL [Suspect]
     Indication: PRODUCT USED FOR UNKNOWN INDICATION
     Route: 042
     Dates: start: 20130726
  5. SUFENTANYL [Suspect]
     Indication: PRODUCT USED FOR UNKNOWN INDICATION
     Dosage: SUFENTANYL MYLAN, ONGOING TREATMENT
     Route: 042
     Dates: start: 20130726
  6. MIDAZOLAM HYDROCHLORIDE [Suspect]
     Indication: PRODUCT USED FOR UNKNOWN INDICATION
     Dosage: MIDAZOLAM MYLAN, ONGOING TREATMENT
     Route: 042
     Dates: start: 20130726
  7. THIOPENTAL [Suspect]
     Indication: PRODUCT USED FOR UNKNOWN INDICATION
     Dosage: THIOPENTAL ROTEXMEDICA, ONGOING TREATMENT
     Route: 042
     Dates: start: 20130728
  8. LAMICTAL [Concomitant]
     Route: 065
     Dates: start: 20130628, end: 20130630
  9. ZEBINIX [Concomitant]
  10. KEPPRA [Concomitant]
     Route: 065
     Dates: start: 201210
  11. ZONEGRAN [Concomitant]
     Route: 065
     Dates: start: 201210
  12. VALIUM [Concomitant]
     Route: 065
  13. VALPROATE [Concomitant]
     Dosage: 0.7 ML/KG.
     Route: 042
     Dates: start: 20130630
  14. URBANYL [Concomitant]
  15. DI-HYDAN [Concomitant]
  16. DERMOVAL (FRANCE) [Concomitant]
     Route: 065
     Dates: end: 20130725
  17. VIMPAT [Concomitant]

REACTIONS (2)
  - Rash generalised [Recovering/Resolving]
  - Eosinophilia [Recovered/Resolved]
